FAERS Safety Report 6978780-0 (Version None)
Quarter: 2010Q3

REPORT INFORMATION
  Report Type: 
  Country: None (occurrence: None)
  Receive Date: 20100913
  Receipt Date: 20100903
  Transmission Date: 20110219
  Serious: Yes (Death)
  Sender: FDA-Public Use
  Company Number: DE-ROCHE-726097

PATIENT
  Sex: Male
  Weight: 75 kg

DRUGS (10)
  1. BEVACIZUMAB [Suspect]
     Dosage: FREQUENCY:D1,15,29. LAST DOSE PRIOR TO SAE: 24 AUGUST 2010.FORM:INFUSION
     Route: 065
     Dates: start: 20100824, end: 20100824
  2. OXALIPLATIN [Suspect]
     Dosage: LAST DOSE PRIOR TO SAE: 24 AUGUST 2010.FORM:INFUSION
     Route: 065
     Dates: start: 20100824, end: 20100824
  3. FLUOROURACIL [Suspect]
     Dosage: FREQUENCY:D 1-3, 15, 29-31.LAST DATE PRIOR TO SAE: 26 AUGUST 2010.
     Route: 065
     Dates: start: 20100824, end: 20100826
  4. FOLINIC ACID [Suspect]
     Dosage: LAST DOSE PRIOR TO SAE: 24 AUGUST 2010.
     Route: 065
     Dates: start: 20100824
  5. GLIMEPIRID [Concomitant]
  6. BISOPROLOL [Concomitant]
  7. NIFEREX [Concomitant]
  8. LANTUS [Concomitant]
  9. CLEXANE [Concomitant]
  10. ATENOLOL [Concomitant]
     Dosage: REPORTED:ATENOLOL PLUS.

REACTIONS (1)
  - GENERAL PHYSICAL HEALTH DETERIORATION [None]
